FAERS Safety Report 6290002-5 (Version None)
Quarter: 2009Q3

REPORT INFORMATION
  Report Type: 
  Country: None (occurrence: None)
  Receive Date: 20090730
  Receipt Date: 20081021
  Transmission Date: 20100115
  Serious: Yes (Hospitalization)
  Sender: FDA-Public Use
  Company Number: US-BRISTOL-MYERS SQUIBB COMPANY-14378053

PATIENT
  Sex: Male

DRUGS (1)
  1. COUMADIN [Suspect]
     Dates: start: 20020101

REACTIONS (2)
  - CHEST PAIN [None]
  - INTERNATIONAL NORMALISED RATIO FLUCTUATION [None]
